FAERS Safety Report 14519047 (Version 1)
Quarter: 2018Q1

REPORT INFORMATION
  Report Type: Spontaneous
  Country: US (occurrence: US)
  Receive Date: 20180209
  Receipt Date: 20180209
  Transmission Date: 20180509
  Serious: No
  Sender: FDA-Public Use
  Company Number: None

PATIENT
  Age: 56 Year
  Sex: Male

DRUGS (1)
  1. OXYCODONE [Suspect]
     Active Substance: OXYCODONE
     Indication: PAIN
     Route: 048
     Dates: start: 20171229, end: 20180209

REACTIONS (6)
  - Product tampering [None]
  - Product taste abnormal [None]
  - Drug ineffective [None]
  - Product quality issue [None]
  - Product colour issue [None]
  - Product size issue [None]

NARRATIVE: CASE EVENT DATE: 20180209
